FAERS Safety Report 4383671-8 (Version None)
Quarter: 2004Q2

REPORT INFORMATION
  Report Type: 
  Country: None (occurrence: None)
  Receive Date: 20040623
  Receipt Date: 20040608
  Transmission Date: 20050107
  Serious: Yes (Other)
  Sender: FDA-Public Use
  Company Number: AU-GLAXOSMITHKLINE-B0335720A

PATIENT
  Sex: Male

DRUGS (1)
  1. ZYBAN [Suspect]
     Indication: EX-SMOKER
     Route: 048

REACTIONS (4)
  - ANHEDONIA [None]
  - DEPRESSION [None]
  - SOCIAL PROBLEM [None]
  - SUICIDAL IDEATION [None]
